FAERS Safety Report 22876980 (Version 5)
Quarter: 2023Q4

REPORT INFORMATION
  Report Type: Report from Study
  Country: US (occurrence: US)
  Receive Date: 20230829
  Receipt Date: 20231212
  Transmission Date: 20240110
  Serious: Yes (Other)
  Sender: FDA-Public Use
  Company Number: US-UCBSA-2023037051

PATIENT
  Sex: Female
  Weight: 79.378 kg

DRUGS (6)
  1. CERTOLIZUMAB PEGOL [Suspect]
     Active Substance: CERTOLIZUMAB PEGOL
     Indication: Psoriatic arthropathy
     Dosage: 400 MILLIGRAM, EV 2 WEEKS(QOW)
     Route: 058
     Dates: start: 20230711, end: 2023
  2. CERTOLIZUMAB PEGOL [Suspect]
     Active Substance: CERTOLIZUMAB PEGOL
     Dosage: 400 MILLIGRAM, EV 4 WEEKS
     Route: 058
     Dates: start: 2023, end: 20231024
  3. CERTOLIZUMAB PEGOL [Suspect]
     Active Substance: CERTOLIZUMAB PEGOL
     Dosage: UNK
     Route: 058
     Dates: start: 2023, end: 20231031
  4. TYLENOL [Concomitant]
     Active Substance: ACETAMINOPHEN
     Indication: Product used for unknown indication
     Dosage: UNK
  5. CRESTOR [Concomitant]
     Active Substance: ROSUVASTATIN CALCIUM
     Indication: Product used for unknown indication
     Dosage: UNK
  6. CRESTOR [Concomitant]
     Active Substance: ROSUVASTATIN CALCIUM
     Dosage: UNK
     Dates: start: 202309

REACTIONS (26)
  - Psoriatic arthropathy [Recovered/Resolved]
  - Hepatitis C [Unknown]
  - Hepatic cyst [Unknown]
  - Pancreatic cyst [Unknown]
  - Cholelithiasis [Unknown]
  - Gallbladder disorder [Unknown]
  - Peripheral swelling [Unknown]
  - Fatigue [Unknown]
  - Adnexa uteri pain [Unknown]
  - Night sweats [Unknown]
  - Erythema [Unknown]
  - Neck mass [Unknown]
  - Hepatic enzyme increased [Not Recovered/Not Resolved]
  - Monocyte count increased [Unknown]
  - Oropharyngeal pain [Unknown]
  - Rash pruritic [Not Recovered/Not Resolved]
  - Miliaria [Unknown]
  - Sleep disorder [Unknown]
  - Thyroid mass [Unknown]
  - Pain [Unknown]
  - Memory impairment [Unknown]
  - Gait disturbance [Unknown]
  - Blood triglycerides increased [Unknown]
  - Glycosylated haemoglobin increased [Not Recovered/Not Resolved]
  - Drug ineffective [Unknown]
  - Arthralgia [Recovering/Resolving]

NARRATIVE: CASE EVENT DATE: 20230101
